FAERS Safety Report 9809665 (Version 2)
Quarter: 2014Q1

REPORT INFORMATION
  Report Type: Spontaneous
  Country: US (occurrence: US)
  Receive Date: 20140110
  Receipt Date: 20140110
  Transmission Date: 20141002
  Serious: Yes (Life-Threatening)
  Sender: FDA-Public Use
  Company Number: US-SANOFI-AVENTIS-2012SA082891

PATIENT
  Age: 60 Year
  Sex: Female
  Weight: 86 kg

DRUGS (7)
  1. PLAVIX [Suspect]
     Indication: ACUTE CORONARY SYNDROME
     Route: 048
     Dates: start: 20120918, end: 20120918
  2. ASPIRIN [Suspect]
     Indication: ACUTE CORONARY SYNDROME
     Route: 048
  3. ASPIRIN [Suspect]
     Indication: ACUTE CORONARY SYNDROME
     Route: 048
     Dates: start: 20120918, end: 20121003
  4. OTAMIXABAN [Suspect]
     Indication: ACUTE CORONARY SYNDROME
     Route: 042
     Dates: start: 20120918, end: 20120919
  5. LEVOPHED [Concomitant]
     Dates: start: 20120919, end: 20120919
  6. LEVOPHED [Concomitant]
     Dates: start: 20120920, end: 20120927
  7. LEVOPHED [Concomitant]
     Dates: start: 20120928, end: 20120928

REACTIONS (1)
  - Post procedural haemorrhage [Recovered/Resolved]
